FAERS Safety Report 23226481 (Version 2)
Quarter: 2023Q4

REPORT INFORMATION
  Report Type: Spontaneous
  Country: JP (occurrence: None)
  Receive Date: 20231124
  Receipt Date: 20231128
  Transmission Date: 20240109
  Serious: Yes (Other)
  Sender: FDA-Public Use
  Company Number: 2023A263257

PATIENT
  Age: 53 Year
  Sex: Male

DRUGS (7)
  1. DAPAGLIFLOZIN [Suspect]
     Active Substance: DAPAGLIFLOZIN
     Indication: Type 2 diabetes mellitus
     Route: 048
     Dates: start: 20200710, end: 20210103
  2. NIFEDIPINE [Concomitant]
     Active Substance: NIFEDIPINE
  3. AVAPRO [Concomitant]
     Active Substance: IRBESARTAN
  4. BEZAFIBRATE [Concomitant]
     Active Substance: BEZAFIBRATE
  5. ALLOPURINOL [Concomitant]
     Active Substance: ALLOPURINOL
  6. METGLUCO [Concomitant]
     Active Substance: METFORMIN HYDROCHLORIDE
  7. JANUVIA [Concomitant]
     Active Substance: SITAGLIPTIN PHOSPHATE

REACTIONS (1)
  - Transient ischaemic attack [Recovered/Resolved]

NARRATIVE: CASE EVENT DATE: 20210102
